FAERS Safety Report 8209054-8 (Version None)
Quarter: 2012Q1

REPORT INFORMATION
  Report Type: 
  Country: None (occurrence: None)
  Receive Date: 20120314
  Receipt Date: 20120306
  Transmission Date: 20120608
  Serious: Yes (Death, Hospitalization)
  Sender: FDA-Public Use
  Company Number: DE-ROCHE-777617

PATIENT
  Sex: Female
  Weight: 75 kg

DRUGS (9)
  1. HERCEPTIN [Suspect]
     Route: 065
     Dates: start: 20101130, end: 20110315
  2. RAMIPRIL [Concomitant]
     Indication: HYPERTENSION
  3. DIGITOXIN TAB [Concomitant]
     Indication: ATRIAL FIBRILLATION
  4. EXJADE [Concomitant]
     Route: 048
     Dates: start: 20110311
  5. LETROZOLE [Concomitant]
     Indication: BREAST CANCER
  6. FEMARA [Concomitant]
     Route: 048
     Dates: start: 20101104
  7. HERCEPTIN [Suspect]
     Indication: BREAST CANCER
     Dosage: LOADING DOSE
     Route: 065
  8. BISOBETA [Concomitant]
     Indication: HYPERTENSION
  9. FALITHROM [Concomitant]

REACTIONS (2)
  - CARDIOMYOPATHY [None]
  - GASTROENTERITIS [None]
